FAERS Safety Report 19631192 (Version 4)
Quarter: 2021Q3

REPORT INFORMATION
  Report Type: Spontaneous
  Country: AR (occurrence: AR)
  Receive Date: 20210728
  Receipt Date: 20210827
  Transmission Date: 20211014
  Serious: Yes (Hospitalization, Other)
  Sender: FDA-Public Use
  Company Number: AR-SA-2021SA247380

PATIENT
  Age: 47 Year
  Sex: Male

DRUGS (2)
  1. LEMTRADA [Suspect]
     Active Substance: ALEMTUZUMAB
     Indication: MULTIPLE SCLEROSIS
     Dosage: 12 MG, Q8D
     Route: 041
     Dates: start: 20150501
  2. LEMTRADA [Suspect]
     Active Substance: ALEMTUZUMAB
     Dosage: 12 MG, Q8D
     Route: 041
     Dates: end: 20160501

REACTIONS (11)
  - Oedema peripheral [Unknown]
  - Pyrexia [Unknown]
  - Goodpasture^s syndrome [Not Recovered/Not Resolved]
  - Biopsy kidney abnormal [Not Recovered/Not Resolved]
  - Blood creatinine increased [Unknown]
  - Nephropathy [Unknown]
  - Condition aggravated [Not Recovered/Not Resolved]
  - Haematuria [Unknown]
  - Autoimmune nephritis [Not Recovered/Not Resolved]
  - Acute kidney injury [Unknown]
  - Inappropriate schedule of product administration [Unknown]

NARRATIVE: CASE EVENT DATE: 20150501
